FAERS Safety Report 23119212 (Version 1)
Quarter: 2023Q4

REPORT INFORMATION
  Report Type: Spontaneous
  Country: US (occurrence: US)
  Receive Date: 20231028
  Receipt Date: 20231028
  Transmission Date: 20240109
  Serious: Yes (Other)
  Sender: FDA-Public Use
  Company Number: US-AMGEN-USASP2023187623

PATIENT
  Age: 47 Year
  Sex: Female

DRUGS (2)
  1. BEVACIZUMAB [Suspect]
     Active Substance: BEVACIZUMAB
     Indication: Spinal cord neoplasm
     Dosage: UNK  (FOUR DOSES)
     Route: 065
  2. TEMOZOLOMIDE [Concomitant]
     Active Substance: TEMOZOLOMIDE
     Dosage: 15 MILLIGRAM/M^2 QMO (FOR 5 DAYS EVERY MONTH)
     Route: 065

REACTIONS (3)
  - Spinal cord neoplasm [Unknown]
  - Tumour haemorrhage [Unknown]
  - Off label use [Unknown]
